FAERS Safety Report 5692954-0 (Version None)
Quarter: 2008Q2

REPORT INFORMATION
  Report Type: 
  Country: None (occurrence: None)
  Receive Date: 20080403
  Receipt Date: 20080324
  Transmission Date: 20081010
  Serious: Yes (Hospitalization)
  Sender: FDA-Public Use
  Company Number: US-JNJFOC-20080306174

PATIENT
  Sex: Male
  Weight: 77.11 kg

DRUGS (10)
  1. DURAGESIC-100 [Suspect]
     Route: 062
  2. DURAGESIC-100 [Suspect]
     Indication: PAIN
     Route: 062
  3. FENTANYL TRANSDERMAL SYSTEM [Suspect]
     Indication: PAIN
     Route: 062
  4. ZYVOX [Suspect]
     Indication: PNEUMONIA
     Route: 048
  5. CYMBALTA [Suspect]
     Indication: APPETITE DISORDER
     Route: 048
  6. REMERON [Suspect]
     Indication: APPETITE DISORDER
     Route: 048
  7. PERCOCET [Concomitant]
     Indication: PAIN
     Route: 048
  8. OXYCONTIN [Concomitant]
     Indication: PAIN
     Route: 048
  9. VALIUM [Concomitant]
     Route: 048
  10. COUMADIN [Concomitant]
     Route: 048

REACTIONS (6)
  - ANOREXIA [None]
  - HYPERHIDROSIS [None]
  - PNEUMONIA [None]
  - PNEUMONIA STAPHYLOCOCCAL [None]
  - WEIGHT DECREASED [None]
  - WRONG TECHNIQUE IN DRUG USAGE PROCESS [None]
